FAERS Safety Report 5841132-0 (Version None)
Quarter: 2008Q3

REPORT INFORMATION
  Report Type: 
  Country: None (occurrence: None)
  Receive Date: 20080811
  Receipt Date: 20080811
  Transmission Date: 20090109
  Serious: Yes (Hospitalization)
  Sender: FDA-Public Use
  Company Number: None

PATIENT
  Age: 62 Year
  Sex: Male

DRUGS (1)
  1. POVIDONE IODINE [Suspect]
     Indication: PREOPERATIVE CARE
     Dates: start: 20080807, end: 20080807

REACTIONS (4)
  - HYPOTENSION [None]
  - PRURITUS [None]
  - THROAT IRRITATION [None]
  - URTICARIA [None]
